FAERS Safety Report 24729443 (Version 1)
Quarter: 2024Q4

REPORT INFORMATION
  Report Type: Spontaneous
  Country: US (occurrence: US)
  Receive Date: 20241213
  Receipt Date: 20241213
  Transmission Date: 20250114
  Serious: No
  Sender: ACCORD
  Company Number: US-Accord-395299

PATIENT
  Sex: Female
  Weight: 65.77 kg

DRUGS (2)
  1. LEVOTHYROXINE [Suspect]
     Active Substance: LEVOTHYROXINE
     Indication: Autoimmune thyroiditis
     Route: 048
  2. NALTREXONE [Concomitant]
     Active Substance: NALTREXONE
     Dosage: LOW DOSE

REACTIONS (5)
  - Feeling jittery [Unknown]
  - Blood thyroid stimulating hormone decreased [Unknown]
  - Weight fluctuation [Unknown]
  - Product label issue [Unknown]
  - Off label use [Unknown]
